FAERS Safety Report 25417696 (Version 1)
Quarter: 2025Q2

REPORT INFORMATION
  Report Type: Spontaneous
  Country: US (occurrence: None)
  Receive Date: 20250609
  Receipt Date: 20250609
  Transmission Date: 20250716
  Serious: Yes (Other)
  Sender: FDA-CTU
  Company Number: None

PATIENT
  Age: 75 Year
  Sex: Female
  Weight: 63 kg

DRUGS (7)
  1. LEQVIO [Suspect]
     Active Substance: INCLISIRAN SODIUM
     Indication: Blood cholesterol increased
     Dates: start: 20241231, end: 20241231
  2. CYMBALTA [Concomitant]
     Active Substance: DULOXETINE HYDROCHLORIDE
  3. insuline - glarcine 10 units [Concomitant]
  4. estrogen cream [Concomitant]
  5. ASPIRIN [Concomitant]
     Active Substance: ASPIRIN
  6. Vitamin D 2,000 [Concomitant]
  7. VITAMIN B12 [Concomitant]
     Active Substance: CYANOCOBALAMIN

REACTIONS (6)
  - Pleural effusion [None]
  - Pulmonary fibrosis [None]
  - Alopecia [None]
  - Weight decreased [None]
  - Hypophagia [None]
  - Musculoskeletal chest pain [None]

NARRATIVE: CASE EVENT DATE: 20241231
